FAERS Safety Report 14279946 (Version 3)
Quarter: 2018Q2

REPORT INFORMATION
  Report Type: Report from Study
  Country: US (occurrence: US)
  Receive Date: 20171212
  Receipt Date: 20180629
  Transmission Date: 20180711
  Serious: Yes (Hospitalization)
  Sender: FDA-Public Use
  Company Number: US-ACTELION-A-US2017-163875

PATIENT
  Age: 9 Month
  Sex: Male

DRUGS (4)
  1. SYNAGIS [Concomitant]
     Active Substance: PALIVIZUMAB
  2. SILDENAFIL. [Concomitant]
     Active Substance: SILDENAFIL
     Dosage: 20 MG, UNK
     Dates: start: 20170831
  3. TRACLEER [Suspect]
     Active Substance: BOSENTAN
     Indication: PULMONARY HYPERTENSION
     Dosage: 5 MG, BID
     Route: 048
     Dates: start: 201704
  4. TRACLEER [Suspect]
     Active Substance: BOSENTAN
     Dosage: 32 MG, BID
     Route: 049

REACTIONS (3)
  - Pyrexia [Recovered/Resolved]
  - Tracheostomy [Unknown]
  - Hospitalisation [Unknown]
